FAERS Safety Report 9106081 (Version 1)
Quarter: 2013Q1

REPORT INFORMATION
  Report Type: Spontaneous
  Country: US (occurrence: US)
  Receive Date: 20130220
  Receipt Date: 20130220
  Transmission Date: 20140127
  Serious: Yes (Other)
  Sender: FDA-Public Use
  Company Number: US-PFIZER INC-2013061162

PATIENT
  Age: 47 Year
  Sex: Female
  Weight: 50.8 kg

DRUGS (1)
  1. LYBREL [Suspect]
     Indication: CONTRACEPTION
     Dosage: 1 DF, 1X/DAY

REACTIONS (1)
  - Thyroid disorder [Unknown]
